FAERS Safety Report 17527907 (Version 2)
Quarter: 2020Q2

REPORT INFORMATION
  Report Type: Report from Study
  Country: US (occurrence: US)
  Receive Date: 20200311
  Receipt Date: 20200403
  Transmission Date: 20200713
  Serious: Yes (Other)
  Sender: FDA-Public Use
  Company Number: US-BAYER-2020-031454

PATIENT
  Age: 40 Year
  Sex: Female

DRUGS (3)
  1. STIVARGA [Suspect]
     Active Substance: REGORAFENIB
     Indication: COLORECTAL CANCER
     Dosage: 80 MG DAILY (FOR FIST 2 WEEKS THEN INCREASE TO 120 MG)
     Route: 048
     Dates: start: 20200217, end: 2020
  2. STIVARGA [Suspect]
     Active Substance: REGORAFENIB
     Indication: COLORECTAL CANCER
     Dosage: DAILY DOSE 120 MG (21 DAYS ON/7 DAYS OFF)
     Route: 048
     Dates: start: 20200302, end: 202003
  3. STIVARGA [Suspect]
     Active Substance: REGORAFENIB
     Indication: COLORECTAL CANCER
     Dosage: 80 MG ALTERNATING DAILY WITH 120 MG
     Route: 048
     Dates: start: 20200316

REACTIONS (17)
  - Vaginal haemorrhage [Not Recovered/Not Resolved]
  - Pain in extremity [Not Recovered/Not Resolved]
  - Exercise tolerance decreased [Not Recovered/Not Resolved]
  - Headache [Unknown]
  - Dysphonia [Not Recovered/Not Resolved]
  - Stoma site irritation [None]
  - Feeling abnormal [None]
  - Pain [Not Recovered/Not Resolved]
  - Hypertension [Recovered/Resolved]
  - Fatigue [Not Recovered/Not Resolved]
  - Diarrhoea [Unknown]
  - Off label use [None]
  - Dizziness [None]
  - Ovarian mass [None]
  - Diarrhoea [None]
  - Hypotension [Recovered/Resolved]
  - Neuropathy peripheral [Not Recovered/Not Resolved]

NARRATIVE: CASE EVENT DATE: 20200217
